FAERS Safety Report 9862815 (Version 4)
Quarter: 2014Q4

REPORT INFORMATION
  Report Type: Report from Study
  Country: NL (occurrence: NL)
  Receive Date: 20140203
  Receipt Date: 20141001
  Transmission Date: 20150529
  Serious: Yes (Hospitalization, Other)
  Sender: FDA-Public Use
  Company Number: PHHO2014NL001341

PATIENT
  Age: 26 Year
  Sex: Female
  Weight: 65.7 kg

DRUGS (4)
  1. SOM230 [Suspect]
     Active Substance: PASIREOTIDE
     Indication: DUMPING SYNDROME
     Dosage: 50 UG, TID
     Route: 058
     Dates: start: 20131016
  2. SOM230 [Suspect]
     Active Substance: PASIREOTIDE
     Dosage: 200 UG, TID
     Route: 058
     Dates: start: 20131106
  3. SOM230 [Suspect]
     Active Substance: PASIREOTIDE
     Dosage: 150 MG, TID
     Route: 058
     Dates: start: 20131030
  4. SOM230 [Suspect]
     Active Substance: PASIREOTIDE
     Dosage: 100 UG, TID
     Route: 058
     Dates: start: 20131023

REACTIONS (1)
  - Hypoglycaemia [Recovering/Resolving]

NARRATIVE: CASE EVENT DATE: 20131031
